FAERS Safety Report 10179640 (Version 2)
Quarter: 2014Q2

REPORT INFORMATION
  Report Type: Spontaneous
  Country: US (occurrence: US)
  Receive Date: 20140519
  Receipt Date: 20140610
  Transmission Date: 20141212
  Serious: No
  Sender: FDA-Public Use
  Company Number: US-PFIZER INC-2014134253

PATIENT
  Age: 84 Year
  Sex: Male
  Weight: 72.56 kg

DRUGS (1)
  1. VFEND [Suspect]
     Indication: LUNG INFECTION
     Dosage: 2X/DAY
     Route: 048
     Dates: start: 201403

REACTIONS (2)
  - Feeling abnormal [Unknown]
  - Weight decreased [Unknown]
